FAERS Safety Report 7480765-5 (Version None)
Quarter: 2011Q2

REPORT INFORMATION
  Report Type: 
  Country: None (occurrence: None)
  Receive Date: 20110506
  Receipt Date: 20110420
  Transmission Date: 20111010
  Serious: Yes (Hospitalization, Disabling, Other)
  Sender: FDA-Public Use
  Company Number: JP-2011-10496

PATIENT
  Age: 63 Year
  Sex: Female

DRUGS (12)
  1. LASIX (FUROSEMMIDE) [Concomitant]
  2. MONILAC( LACTULOSE) [Concomitant]
  3. AMINOLEBAN EN (NOTRITION FOR HEPATIC INSUFFISIENCY) [Concomitant]
  4. RABEPRAZOLE SODIUM [Concomitant]
  5. METALCAPTASE (D-PENICILLAMINE) [Concomitant]
  6. NEOMALLERMIN-TR (D-CHLORPHENITAMINE MALEATE) [Concomitant]
  7. RESTAMIN (DIPHENHYDRAMINE) [Concomitant]
  8. OPC-41061 (TOLVAPTAN) TABLET [Suspect]
     Indication: HEPATIC CIRRHOSIS
     Dates: start: 20110302, end: 20110308
  9. KANAMYCIN (LANAMYCIN MONOSULFATE) [Concomitant]
  10. PYRIDOXAL PHOSPHATE (PYRIDOXAL PHOSPHATE) [Concomitant]
  11. LIVACT (ISOLEUCINE, LEUCINE, ALINE) GRANULES [Concomitant]
  12. SHAKUYAKU-KANZO-TO (SHAKUYSKU-KANZO-TO) [Concomitant]

REACTIONS (16)
  - DECREASED APPETITE [None]
  - DISEASE PROGRESSION [None]
  - RENAL FAILURE ACUTE [None]
  - PLEURAL EFFUSION [None]
  - INFECTION [None]
  - WEIGHT INCREASED [None]
  - HEPATIC CIRRHOSIS [None]
  - OXYGEN SATURATION DECREASED [None]
  - MUSCLE SPASMS [None]
  - DIALYSIS [None]
  - PSEUDOMEMBRANOUS COLITIS [None]
  - HYPOVOLAEMIA [None]
  - BLOOD POTASSIUM INCREASED [None]
  - CONDITION AGGRAVATED [None]
  - ASCITES [None]
  - DIARRHOEA [None]
